FAERS Safety Report 5055132-4 (Version None)
Quarter: 2006Q3

REPORT INFORMATION
  Report Type: 
  Country: None (occurrence: None)
  Receive Date: 20060714
  Receipt Date: 20060706
  Transmission Date: 20061208
  Serious: Yes (Other)
  Sender: FDA-Public Use
  Company Number: SPV1-2006-00147

PATIENT
  Sex: 0

DRUGS (1)
  1. ADDERALL 10 [Suspect]

REACTIONS (1)
  - PNEUMONIA [None]
